FAERS Safety Report 13639937 (Version 1)
Quarter: 2017Q2

REPORT INFORMATION
  Report Type: Spontaneous
  Country: US (occurrence: US)
  Receive Date: 20170609
  Receipt Date: 20170609
  Transmission Date: 20170830
  Serious: No
  Sender: FDA-Public Use
  Company Number: US-ROCHE-1057362

PATIENT
  Sex: Female

DRUGS (6)
  1. CLONIDINE. [Concomitant]
     Active Substance: CLONIDINE
  2. LITHIUM. [Concomitant]
     Active Substance: LITHIUM
  3. KLONOPIN [Suspect]
     Active Substance: CLONAZEPAM
     Indication: TOURETTE^S DISORDER
     Route: 065
  4. DEPAKOTE [Concomitant]
     Active Substance: DIVALPROEX SODIUM
  5. GEODON [Concomitant]
     Active Substance: ZIPRASIDONE HYDROCHLORIDE\ZIPRASIDONE MESYLATE
     Indication: TOURETTE^S DISORDER
  6. SEROQUEL [Concomitant]
     Active Substance: QUETIAPINE FUMARATE
     Indication: TOURETTE^S DISORDER

REACTIONS (1)
  - Drug ineffective [Unknown]
